FAERS Safety Report 5823436-0 (Version None)
Quarter: 2008Q3

REPORT INFORMATION
  Report Type: 
  Country: None (occurrence: None)
  Receive Date: 20080725
  Receipt Date: 20070821
  Transmission Date: 20090109
  Serious: No
  Sender: FDA-Public Use
  Company Number: US-ABBOTT-07P-163-0378746-00

PATIENT
  Sex: Male
  Weight: 2.18 kg

DRUGS (8)
  1. RITONAVIR SOFT GELATIN CAPSULES [Suspect]
     Indication: DRUG EXPOSURE DURING PREGNANCY
  2. KALETRA [Suspect]
     Indication: DRUG EXPOSURE DURING PREGNANCY
  3. ABACAVIR [Suspect]
     Indication: DRUG EXPOSURE DURING PREGNANCY
  4. LAMIVUDINE [Suspect]
     Indication: DRUG EXPOSURE DURING PREGNANCY
  5. FOSAMPRENAVIR [Suspect]
     Indication: DRUG EXPOSURE DURING PREGNANCY
  6. STAVUDINE [Suspect]
     Indication: DRUG EXPOSURE DURING PREGNANCY
  7. ZIDOVUDINE [Suspect]
     Indication: DRUG EXPOSURE DURING PREGNANCY
  8. ENFUVIRTIDE [Suspect]
     Indication: DRUG EXPOSURE DURING PREGNANCY

REACTIONS (1)
  - PREMATURE BABY [None]
